FAERS Safety Report 4633216-X (Version None)
Quarter: 2005Q2

REPORT INFORMATION
  Report Type: 
  Country: None (occurrence: None)
  Receive Date: 20050408
  Receipt Date: 20050325
  Transmission Date: 20051028
  Serious: Yes (Hospitalization)
  Sender: FDA-Public Use
  Company Number: DSA_26208_2005

PATIENT
  Age: 77 Year
  Sex: Male

DRUGS (3)
  1. MONO-TILDIEM [Suspect]
     Dosage: 200 MG Q DAY PO
     Route: 048
     Dates: start: 20050311, end: 20050311
  2. EQUANIL [Suspect]
     Dosage: 800 MG ONCE PO
     Route: 048
     Dates: start: 20050311, end: 20050311
  3. HALDOL [Suspect]
     Dosage: DF PO
     Route: 048
     Dates: start: 20050311, end: 20050311

REACTIONS (2)
  - SOMNOLENCE [None]
  - SUICIDE ATTEMPT [None]
